FAERS Safety Report 4751298-1 (Version None)
Quarter: 2005Q3

REPORT INFORMATION
  Report Type: 
  Country: None (occurrence: None)
  Receive Date: 20050822
  Receipt Date: 20050808
  Transmission Date: 20060218
  Serious: Yes (Other)
  Sender: FDA-Public Use
  Company Number: 2005113972

PATIENT
  Age: 61 Year
  Sex: Female
  Weight: 92.9874 kg

DRUGS (13)
  1. ZYRTEC [Suspect]
     Indication: HYPERSENSITIVITY
     Dosage: ORAL
     Route: 048
     Dates: start: 19980101
  2. CELEBREX [Suspect]
     Indication: PAIN
     Dosage: 400 MG (200 MG, 2 IN 1 D), ORAL
     Route: 048
  3. CLONIDINE [Concomitant]
  4. PYRIDIUM (PHENAZOPYRIDINE HYDROCHLORIDE) [Concomitant]
  5. PREVACID [Concomitant]
  6. VASOTEC [Concomitant]
  7. PREMARIN [Concomitant]
  8. TESTOSTERONE [Concomitant]
  9. PERPHENAZINE [Concomitant]
  10. MAGNESIUM [Concomitant]
  11. ELAVIL [Concomitant]
  12. VALIUM [Concomitant]
  13. TOPROL-XL [Concomitant]

REACTIONS (9)
  - ASTHMA [None]
  - DEHYDRATION [None]
  - DRUG INEFFECTIVE [None]
  - EMPHYSEMA [None]
  - OSTEOARTHRITIS [None]
  - OXYGEN SATURATION DECREASED [None]
  - PAIN [None]
  - PROCEDURAL COMPLICATION [None]
  - RENAL FAILURE [None]
